FAERS Safety Report 8809665 (Version 1)
Quarter: 2012Q4

REPORT INFORMATION
  Report Type: 
  Country: US (occurrence: US)
  Receive Date: 20120926
  Receipt Date: 20120926
  Transmission Date: 20130627
  Serious: Yes (Other)
  Sender: FDA-Public Use
  Company Number: US-ROCHE-1127106

PATIENT
  Sex: Male

DRUGS (3)
  1. AVASTIN [Suspect]
     Indication: HEPATIC NEOPLASM MALIGNANT
     Route: 065
  2. XELODA [Suspect]
     Indication: HEPATIC NEOPLASM MALIGNANT
     Route: 065
  3. SANDOSTATIN [Concomitant]

REACTIONS (2)
  - Lung neoplasm [Unknown]
  - Disease progression [Unknown]
